FAERS Safety Report 7592578-4 (Version None)
Quarter: 2011Q3

REPORT INFORMATION
  Report Type: 
  Country: None (occurrence: None)
  Receive Date: 20110706
  Receipt Date: 20110406
  Transmission Date: 20111222
  Serious: No
  Sender: FDA-Public Use
  Company Number: US-TYCO HEALTHCARE/MALLINCKRODT-T201100706

PATIENT
  Sex: Male
  Weight: 76.19 kg

DRUGS (1)
  1. OXYCODONE/ACETAMINOPHEN [Suspect]
     Indication: NEURALGIA
     Dosage: TOOK THREE PILLS, ONE AT 2:00, ONE AT 4:00, ONE AT 5:00
     Route: 048
     Dates: start: 20110405, end: 20110405

REACTIONS (2)
  - INAPPROPRIATE SCHEDULE OF DRUG ADMINISTRATION [None]
  - DRUG INEFFECTIVE [None]
